FAERS Safety Report 4928635-8 (Version None)
Quarter: 2006Q1

REPORT INFORMATION
  Report Type: 
  Country: None (occurrence: None)
  Receive Date: 20060227
  Receipt Date: 20060227
  Transmission Date: 20060701
  Serious: Yes (Life-Threatening, Hospitalization)
  Sender: FDA-Public Use
  Company Number: None

PATIENT
  Age: 65 Year
  Sex: Male
  Weight: 90.2658 kg

DRUGS (1)
  1. GLIMEPIRIDE [Suspect]
     Indication: HYPERGLYCAEMIA
     Dosage: 4MG   BID   PO
     Route: 048
     Dates: start: 20050501, end: 20050510

REACTIONS (4)
  - DIZZINESS [None]
  - EATING DISORDER [None]
  - HYPOGLYCAEMIA [None]
  - RENAL IMPAIRMENT [None]
